FAERS Safety Report 18763079 (Version 1)
Quarter: 2021Q1

REPORT INFORMATION
  Report Type: Spontaneous
  Country: FR (occurrence: FR)
  Receive Date: 20210120
  Receipt Date: 20210120
  Transmission Date: 20210419
  Serious: Yes (Other)
  Sender: FDA-Public Use
  Company Number: FR-ROCHE-2750918

PATIENT
  Age: 51 Year
  Sex: Female

DRUGS (2)
  1. ACUPAN [Concomitant]
     Active Substance: NEFOPAM HYDROCHLORIDE
     Indication: FACIAL PAIN
  2. VALIUM [Suspect]
     Active Substance: DIAZEPAM
     Indication: FACIAL PAIN
     Dosage: OCCASIONALLY FOR 12 YEARS
     Route: 065

REACTIONS (7)
  - Fall [Unknown]
  - Brain oedema [Recovered/Resolved with Sequelae]
  - Brain injury [Recovered/Resolved with Sequelae]
  - Off label use [Unknown]
  - COVID-19 [Recovered/Resolved with Sequelae]
  - Intentional product use issue [Unknown]
  - Malaise [Recovered/Resolved]

NARRATIVE: CASE EVENT DATE: 202004
